FAERS Safety Report 7498461-7 (Version None)
Quarter: 2011Q2

REPORT INFORMATION
  Report Type: 
  Country: None (occurrence: None)
  Receive Date: 20110516
  Receipt Date: 20110511
  Transmission Date: 20111010
  Serious: Yes (Other)
  Sender: FDA-Public Use
  Company Number: 2011SP021272

PATIENT
  Sex: Female

DRUGS (1)
  1. REGATRON (PEGYLATETD INTERFERON ALFA-2B W/RIBAVIRIN) [Suspect]
     Indication: PRODUCT USED FOR UNKNOWN INDICATION

REACTIONS (4)
  - HEPATITIS [None]
  - INFLUENZA LIKE ILLNESS [None]
  - ANAEMIA [None]
  - REFUSAL OF TREATMENT BY PATIENT [None]
